FAERS Safety Report 9889243 (Version 2)
Quarter: 2014Q1

REPORT INFORMATION
  Report Type: Report from Study
  Country: IT (occurrence: IT)
  Receive Date: 20140211
  Receipt Date: 20140211
  Transmission Date: 20141002
  Serious: Yes (Death, Hospitalization, Other)
  Sender: FDA-Public Use
  Company Number: IT-SA-CLOF-1002509

PATIENT
  Age: 51 Year
  Sex: Male
  Weight: 64 kg

DRUGS (7)
  1. CLOFARABINE [Suspect]
     Indication: ACUTE MYELOID LEUKAEMIA
     Dosage: 17 MG, ONCE IN 2 DAYS (REMISSION INDUCTION ON D2, D4, D6, D8, D10)
     Route: 042
     Dates: start: 20121230, end: 20130107
  2. CYTARABINE [Suspect]
     Indication: ACUTE MYELOID LEUKAEMIA
     Dosage: 170 MG, ONCE DAILY (REMISSION INDUCTION 100MG/M2 FOR 10 DAYS D1 TO D10)
     Route: 042
     Dates: start: 20121229, end: 20130107
  3. CYTARABINE [Suspect]
     Indication: ACUTE MYELOID LEUKAEMIA
     Dosage: 1700 MG, UNK
     Route: 065
  4. IDARUBICIN [Suspect]
     Indication: ACUTE MYELOID LEUKAEMIA
     Dosage: 17 MG, ONCE IN 2 DAYS (REMISSION INDUCTION 10 MG/M2 ON DAYS 1, 3 AND 5)
     Route: 042
     Dates: start: 20121229, end: 20130102
  5. ACYCLOVIR [Concomitant]
     Indication: ANTIVIRAL PROPHYLAXIS
     Dosage: 250 MG, TID
     Route: 042
     Dates: start: 20130108, end: 20130125
  6. POSACONAZOLE [Concomitant]
     Indication: PROPHYLAXIS
     Dosage: 200 MG, TID
     Route: 048
     Dates: start: 20130108, end: 20130111
  7. SULFAMETHOPRIM [Concomitant]
     Indication: PROPHYLAXIS
     Dosage: 800/160 MG, 2X/W
     Route: 048
     Dates: start: 20130108, end: 20130123

REACTIONS (10)
  - Septic shock [Fatal]
  - Klebsiella sepsis [Fatal]
  - Acute respiratory distress syndrome [Unknown]
  - Bone marrow failure [Not Recovered/Not Resolved]
  - Multi-organ failure [Not Recovered/Not Resolved]
  - Neutropenia [Not Recovered/Not Resolved]
  - Enterobacter sepsis [Recovered/Resolved]
  - Staphylococcal sepsis [Recovered/Resolved]
  - Bacterial disease carrier [Unknown]
  - Diarrhoea [Recovered/Resolved]
